FAERS Safety Report 13998015 (Version 1)
Quarter: 2017Q3

REPORT INFORMATION
  Report Type: Report from Study
  Country: US (occurrence: US)
  Receive Date: 20170921
  Receipt Date: 20170921
  Transmission Date: 20171128
  Serious: Yes (Death)
  Sender: FDA-Public Use
  Company Number: US-PFIZER INC-2017407460

PATIENT
  Age: 52 Year
  Sex: Male

DRUGS (6)
  1. MYCOPHENOLATE MOFETIL. [Concomitant]
     Active Substance: MYCOPHENOLATE MOFETIL
     Dosage: UNK
     Dates: start: 20160220, end: 20160315
  2. CYCLOSPORINE. [Concomitant]
     Active Substance: CYCLOSPORINE
     Dosage: UNK
     Dates: start: 20160304, end: 20160309
  3. METHYLPREDNISOLONE SODIUM SUCCINATE. [Suspect]
     Active Substance: METHYLPREDNISOLONE SODIUM SUCCINATE
     Dosage: 75 MG, Q12H
     Route: 042
     Dates: end: 20160316
  4. TACROLIMUS. [Concomitant]
     Active Substance: TACROLIMUS
     Dosage: UNK
     Dates: start: 20160312, end: 20160314
  5. INCB039110 [Suspect]
     Active Substance: INVESTIGATIONAL PRODUCT
     Indication: ACUTE GRAFT VERSUS HOST DISEASE
     Dosage: 300 MG, 1X/DAY
     Route: 048
     Dates: start: 20160308, end: 20160314
  6. METHYLPREDNISOLONE SODIUM SUCCINATE. [Suspect]
     Active Substance: METHYLPREDNISOLONE SODIUM SUCCINATE
     Indication: ACUTE GRAFT VERSUS HOST DISEASE
     Dosage: 55 MG, Q12H
     Route: 042
     Dates: start: 20160223

REACTIONS (1)
  - Multiple organ dysfunction syndrome [Fatal]

NARRATIVE: CASE EVENT DATE: 20160318
